FAERS Safety Report 11831737 (Version 2)
Quarter: 2015Q4

REPORT INFORMATION
  Report Type: Spontaneous
  Country: GB (occurrence: GB)
  Receive Date: 20151214
  Receipt Date: 20151216
  Transmission Date: 20160305
  Serious: Yes (Death, Other)
  Sender: FDA-Public Use
  Company Number: GB-PFIZER INC-2015419488

PATIENT
  Sex: Female

DRUGS (1)
  1. TRANEXAMIC ACID. [Suspect]
     Active Substance: TRANEXAMIC ACID
     Indication: CAESAREAN SECTION
     Dosage: 250 MG, UNK
     Route: 037

REACTIONS (11)
  - Wrong drug administered [Fatal]
  - Death [Fatal]
  - Cardiac failure [Unknown]
  - Myoclonus [Unknown]
  - Musculoskeletal pain [Unknown]
  - Pain in extremity [Unknown]
  - Coma scale abnormal [Unknown]
  - Back pain [Unknown]
  - Hypotension [Unknown]
  - Ventricular tachycardia [Unknown]
  - Arrhythmia [Unknown]
